FAERS Safety Report 20884898 (Version 2)
Quarter: 2022Q2

REPORT INFORMATION
  Report Type: Spontaneous
  Country: CN (occurrence: CN)
  Receive Date: 20220527
  Receipt Date: 20220609
  Transmission Date: 20220720
  Serious: Yes (Other)
  Sender: FDA-Public Use
  Company Number: CN-SA-2022SA184145

PATIENT
  Age: 56 Year
  Sex: Male
  Weight: 56 kg

DRUGS (5)
  1. OXALIPLATIN [Suspect]
     Active Substance: OXALIPLATIN
     Indication: Gastric cancer
     Dosage: 220 MG, QD
     Route: 041
     Dates: start: 20220503, end: 20220503
  2. DEXTROSE [Concomitant]
     Active Substance: DEXTROSE
     Dosage: 250 ML, QD
     Route: 041
     Dates: start: 20220503, end: 20220503
  3. DIPHENHYDRAMINE HYDROCHLORIDE [Concomitant]
     Active Substance: DIPHENHYDRAMINE HYDROCHLORIDE
     Indication: Antiallergic therapy
     Dosage: 20 MG
     Route: 030
     Dates: start: 20220503
  4. DEXAMETHASONE SODIUM PHOSPHATE [Concomitant]
     Active Substance: DEXAMETHASONE SODIUM PHOSPHATE
     Indication: Antiallergic therapy
     Dosage: 10 MG
     Route: 042
     Dates: start: 20220503
  5. EPINEPHRINE [Concomitant]
     Active Substance: EPINEPHRINE
     Dosage: UNK
     Route: 042
     Dates: start: 20220503

REACTIONS (3)
  - Dyspnoea [Recovering/Resolving]
  - Hypoaesthesia [Recovering/Resolving]
  - Blood pressure decreased [Recovering/Resolving]

NARRATIVE: CASE EVENT DATE: 20220503
